FAERS Safety Report 14680046 (Version 4)
Quarter: 2018Q2

REPORT INFORMATION
  Report Type: Spontaneous
  Country: US (occurrence: US)
  Receive Date: 20180326
  Receipt Date: 20180518
  Transmission Date: 20180711
  Serious: Yes (Death, Other)
  Sender: FDA-Public Use
  Company Number: US-JNJFOC-20180329198

PATIENT
  Age: 81 Year
  Sex: Female
  Weight: 58.97 kg

DRUGS (3)
  1. ATORVASTATIN [Concomitant]
     Active Substance: ATORVASTATIN
     Route: 048
     Dates: end: 20180112
  2. XARELTO [Suspect]
     Active Substance: RIVAROXABAN
     Indication: CEREBROVASCULAR ACCIDENT PROPHYLAXIS
     Route: 048
     Dates: start: 201608, end: 20180112
  3. XARELTO [Suspect]
     Active Substance: RIVAROXABAN
     Indication: ATRIAL FIBRILLATION
     Route: 048
     Dates: start: 201608, end: 20180112

REACTIONS (4)
  - Creatinine renal clearance abnormal [Unknown]
  - Atrial fibrillation [Fatal]
  - Dementia [Unknown]
  - Bleeding varicose vein [Fatal]

NARRATIVE: CASE EVENT DATE: 20180113
